FAERS Safety Report 26213169 (Version 1)
Quarter: 2025Q4

REPORT INFORMATION
  Report Type: Spontaneous
  Country: GB (occurrence: GB)
  Receive Date: 20251230
  Receipt Date: 20251230
  Transmission Date: 20260118
  Serious: Yes (Life-Threatening, Hospitalization)
  Sender: MYLAN
  Company Number: GB-MYLANLABS-2025M1110661

PATIENT
  Age: 63 Year
  Sex: Female

DRUGS (2)
  1. VANCOMYCIN [Suspect]
     Active Substance: VANCOMYCIN
     Indication: Pneumonia staphylococcal
     Dosage: UNK
  2. PIPERACILLIN [Suspect]
     Active Substance: PIPERACILLIN
     Indication: Pneumonia staphylococcal
     Dosage: UNK

REACTIONS (1)
  - Drug ineffective [Unknown]
